FAERS Safety Report 11868065 (Version 1)
Quarter: 2015Q4

REPORT INFORMATION
  Report Type: Spontaneous
  Country: GB (occurrence: GB)
  Receive Date: 20151224
  Receipt Date: 20151224
  Transmission Date: 20160305
  Serious: Yes (Other)
  Sender: FDA-Public Use
  Company Number: PHHY2015GB164965

PATIENT
  Sex: Male

DRUGS (1)
  1. CO-AMOXICLAV [Suspect]
     Active Substance: AMOXICILLIN\CLAVULANIC ACID
     Indication: EAR INFECTION
     Route: 048
     Dates: start: 20151120

REACTIONS (6)
  - Hypersensitivity [Recovering/Resolving]
  - Chest pain [Recovering/Resolving]
  - Local swelling [Recovering/Resolving]
  - Tremor [Recovering/Resolving]
  - Hypotension [Recovering/Resolving]
  - Swelling face [Recovering/Resolving]

NARRATIVE: CASE EVENT DATE: 20151120
